FAERS Safety Report 10133451 (Version 2)
Quarter: 2014Q4

REPORT INFORMATION
  Report Type: Report from Study
  Country: BR (occurrence: BR)
  Receive Date: 20140428
  Receipt Date: 20141123
  Transmission Date: 20150528
  Serious: Yes (Other)
  Sender: FDA-Public Use
  Company Number: BR-BRISTOL-MYERS SQUIBB COMPANY-20650966

PATIENT
  Age: 69 Year
  Sex: Female

DRUGS (1)
  1. ORENCIA [Suspect]
     Active Substance: ABATACEPT
     Indication: RHEUMATOID ARTHRITIS
     Dosage: LAST DOSE ON 12FEB14
     Route: 042

REACTIONS (1)
  - Dengue fever [Recovered/Resolved]

NARRATIVE: CASE EVENT DATE: 20140327
